FAERS Safety Report 22606502 (Version 1)
Quarter: 2023Q2

REPORT INFORMATION
  Report Type: Spontaneous
  Country: GR (occurrence: GR)
  Receive Date: 20230615
  Receipt Date: 20230615
  Transmission Date: 20230722
  Serious: Yes (Hospitalization)
  Sender: FDA-Public Use
  Company Number: GR-BAYER-2023A083387

PATIENT
  Age: 83 Year
  Sex: Female
  Weight: 72 kg

DRUGS (3)
  1. XARELTO [Suspect]
     Active Substance: RIVAROXABAN
     Indication: Atrial fibrillation
     Dosage: 15 MG, QD
     Route: 048
     Dates: start: 20220531, end: 20230517
  2. DIGOXIN [Concomitant]
     Active Substance: DIGOXIN
     Indication: Atrial fibrillation
     Dosage: 0.125 MG
     Route: 048
     Dates: start: 20220531, end: 20230521
  3. INNOHEP [Concomitant]
     Active Substance: TINZAPARIN SODIUM
     Indication: Atrial fibrillation
     Dosage: 14000 IU, ONCE
     Route: 042
     Dates: start: 20230518

REACTIONS (1)
  - Anaemia [Recovered/Resolved]

NARRATIVE: CASE EVENT DATE: 20230518
